APPROVED DRUG PRODUCT: PENTACEF
Active Ingredient: CEFTAZIDIME
Strength: 2GM/VIAL
Dosage Form/Route: INJECTABLE;INJECTION
Application: A063322 | Product #002
Applicant: GLAXOSMITHKLINE
Approved: Nov 7, 1995 | RLD: No | RS: No | Type: DISCN